FAERS Safety Report 6052107-3 (Version None)
Quarter: 2009Q1

REPORT INFORMATION
  Report Type: 
  Country: None (occurrence: None)
  Receive Date: 20090126
  Receipt Date: 20090119
  Transmission Date: 20090719
  Serious: Yes (Hospitalization, Other)
  Sender: FDA-Public Use
  Company Number: US-ROXANE LABORATORIES, INC.-2009-RO-00086RO

PATIENT
  Age: 44 Year
  Sex: Female

DRUGS (16)
  1. ONDANSETRON [Suspect]
     Route: 042
  2. ONDANSETRON [Suspect]
  3. MORPHINE [Suspect]
     Route: 042
  4. MORPHINE [Suspect]
  5. GEMFIBROZIL [Suspect]
     Dosage: 1200MG
  6. ASPIRIN [Suspect]
     Dosage: 81MG
  7. ASPIRIN [Suspect]
     Route: 048
  8. ASPIRIN [Suspect]
  9. CLOPIDOGREL [Suspect]
     Dosage: 75MG
  10. CLOPIDOGREL [Suspect]
  11. OMEPRAZOLE [Suspect]
     Dosage: 20MG
  12. DULOXETINE [Suspect]
     Dosage: 60MG
  13. NITROGLYCERIN [Suspect]
     Indication: ANGINA PECTORIS
     Route: 060
  14. NITROGLYCERIN [Suspect]
     Route: 060
  15. HEPARIN [Suspect]
  16. MAGNESIUM HYDROXIDE TAB [Suspect]

REACTIONS (5)
  - ALANINE AMINOTRANSFERASE INCREASED [None]
  - ANGINA PECTORIS [None]
  - ASPARTATE AMINOTRANSFERASE INCREASED [None]
  - DYSPNOEA [None]
  - NAUSEA [None]
